FAERS Safety Report 9325556 (Version 1)
Quarter: 2013Q2

REPORT INFORMATION
  Report Type: Report from Study
  Country: AT (occurrence: AT)
  Receive Date: 20130604
  Receipt Date: 20130604
  Transmission Date: 20140414
  Serious: Yes (Other)
  Sender: FDA-Public Use
  Company Number: AT-ROCHE-1232156

PATIENT
  Age: 52 Year
  Sex: Female
  Weight: 52 kg

DRUGS (4)
  1. RIBAVIRIN [Suspect]
     Indication: HEPATITIS C
     Dosage: 2-2-1
     Route: 048
     Dates: start: 20120928
  2. RIBAVIRIN [Suspect]
     Route: 048
  3. PEG-INTERFERON ALFA 2A [Suspect]
     Indication: HEPATITIS C
     Dosage: 0-0 1
     Route: 058
     Dates: start: 20120928
  4. BOCEPREVIR [Suspect]
     Indication: HEPATITIS C
     Dosage: 4-4-4
     Route: 048
     Dates: start: 20121102

REACTIONS (1)
  - Pancytopenia [Unknown]
